FAERS Safety Report 26002266 (Version 1)
Quarter: 2025Q4

REPORT INFORMATION
  Report Type: Spontaneous
  Country: CN (occurrence: CN)
  Receive Date: 20251105
  Receipt Date: 20251105
  Transmission Date: 20260117
  Serious: Yes (Hospitalization)
  Sender: BEIGENE
  Company Number: CN-BEIGENE-BGN-2025-018922

PATIENT
  Age: 61 Year
  Weight: 64 kg

DRUGS (10)
  1. TISLELIZUMAB [Suspect]
     Active Substance: TISLELIZUMAB
     Indication: Neoplasm malignant
     Dosage: 200 MILLIGRAM
  2. TISLELIZUMAB [Suspect]
     Active Substance: TISLELIZUMAB
     Dosage: 200 MILLIGRAM
     Route: 041
  3. TISLELIZUMAB [Suspect]
     Active Substance: TISLELIZUMAB
     Dosage: 200 MILLIGRAM
     Route: 041
  4. TISLELIZUMAB [Suspect]
     Active Substance: TISLELIZUMAB
     Dosage: 200 MILLIGRAM
  5. CISPLATIN [Suspect]
     Active Substance: CISPLATIN
     Indication: Neoplasm malignant
  6. CISPLATIN [Suspect]
     Active Substance: CISPLATIN
     Route: 041
  7. CISPLATIN [Suspect]
     Active Substance: CISPLATIN
     Dosage: 60 MILLIGRAM, QD
  8. CISPLATIN [Suspect]
     Active Substance: CISPLATIN
     Dosage: 60 MILLIGRAM, QD
     Route: 041
  9. NIMOTUZUMAB [Suspect]
     Active Substance: NIMOTUZUMAB
     Indication: Neoplasm malignant
     Dosage: 4 DOSAGE FORM
     Route: 041
  10. NIMOTUZUMAB [Suspect]
     Active Substance: NIMOTUZUMAB
     Dosage: 4 DOSAGE FORM

REACTIONS (3)
  - Electrolyte imbalance [Recovering/Resolving]
  - Hypokalaemia [Recovering/Resolving]
  - Blood calcium decreased [Recovering/Resolving]
